FAERS Safety Report 6880951-9 (Version None)
Quarter: 2010Q2

REPORT INFORMATION
  Report Type: 
  Country: None (occurrence: None)
  Receive Date: 20100630
  Receipt Date: 20090916
  Transmission Date: 20101027
  Serious: Yes (Disabling, Other)
  Sender: FDA-Public Use
  Company Number: 2009270861

PATIENT
  Sex: Male

DRUGS (1)
  1. ZITHROMAX [Suspect]
     Indication: NASOPHARYNGITIS

REACTIONS (4)
  - DEAFNESS [None]
  - HYPERSENSITIVITY [None]
  - INNER EAR DISORDER [None]
  - VERTIGO [None]
